FAERS Safety Report 23124908 (Version 2)
Quarter: 2023Q4

REPORT INFORMATION
  Report Type: Report from Study
  Country: CA (occurrence: CA)
  Receive Date: 20231030
  Receipt Date: 20231103
  Transmission Date: 20240110
  Serious: Yes (Death, Hospitalization, Other)
  Sender: FDA-Public Use
  Company Number: CA-GLAXOSMITHKLINE-CA2023095133

PATIENT

DRUGS (11)
  1. MEPOLIZUMAB [Suspect]
     Active Substance: MEPOLIZUMAB
     Indication: Asthma
     Dosage: 100 MG, Q4W
     Route: 058
     Dates: start: 20170810
  2. MEPOLIZUMAB [Suspect]
     Active Substance: MEPOLIZUMAB
     Dosage: 100 MG, Q4W
     Route: 058
     Dates: start: 20170810
  3. VENTOLIN [Concomitant]
     Active Substance: ALBUTEROL SULFATE
     Indication: Product used for unknown indication
     Dosage: 2 PUFF(S), BID
  4. BREO ELLIPTA [Concomitant]
     Active Substance: FLUTICASONE FUROATE\VILANTEROL TRIFENATATE
     Indication: Product used for unknown indication
     Dosage: 1 PUFF(S), QD
  5. INCRUSE ELLIPTA [Concomitant]
     Active Substance: UMECLIDINIUM BROMIDE
     Indication: Product used for unknown indication
     Dosage: 1 PUFF(S), QD
  6. IBUPROFEN [Concomitant]
     Active Substance: IBUPROFEN
     Indication: Product used for unknown indication
     Dosage: 600 MG, QD
  7. HYDROCHLOROTHIAZIDE\TELMISARTAN [Concomitant]
     Active Substance: HYDROCHLOROTHIAZIDE\TELMISARTAN
     Indication: Product used for unknown indication
     Dosage: UNK UNK, QD, 80/25
  8. AMLODIPINE [Concomitant]
     Active Substance: AMLODIPINE BESYLATE
     Indication: Product used for unknown indication
     Dosage: 10 MG, QD
  9. DILTIAZEM HYDROCHLORIDE [Concomitant]
     Active Substance: DILTIAZEM HYDROCHLORIDE
     Indication: Product used for unknown indication
     Dosage: UNK, TID (30 TID)
  10. APIXABAN [Concomitant]
     Active Substance: APIXABAN
     Indication: Product used for unknown indication
     Dosage: 10 MG, BID
  11. CLONIDINE HYDROCHLORIDE [Concomitant]
     Active Substance: CLONIDINE HYDROCHLORIDE
     Indication: Product used for unknown indication
     Dosage: 0.1 MG, TID

REACTIONS (11)
  - Death [Fatal]
  - Pulmonary thrombosis [Unknown]
  - Internal haemorrhage [Unknown]
  - Oesophageal carcinoma [Unknown]
  - Lower respiratory tract congestion [Unknown]
  - Productive cough [Unknown]
  - Chills [Unknown]
  - Oxygen saturation decreased [Recovering/Resolving]
  - Lower respiratory tract infection [Unknown]
  - Asthenia [Not Recovered/Not Resolved]
  - Condition aggravated [Not Recovered/Not Resolved]

NARRATIVE: CASE EVENT DATE: 20231013
